FAERS Safety Report 4645094-3 (Version None)
Quarter: 2005Q2

REPORT INFORMATION
  Report Type: 
  Country: None (occurrence: None)
  Receive Date: 20050422
  Receipt Date: 20050411
  Transmission Date: 20051028
  Serious: Yes (Hospitalization)
  Sender: FDA-Public Use
  Company Number: MED000076

PATIENT

DRUGS (1)
  1. HEPARIN SODIUM [Suspect]

REACTIONS (3)
  - CONVULSION [None]
  - INCORRECT DRUG ADMINISTRATION RATE [None]
  - PHARMACEUTICAL PRODUCT COMPLAINT [None]
